FAERS Safety Report 8308959-7 (Version None)
Quarter: 2012Q2

REPORT INFORMATION
  Report Type: 
  Country: None (occurrence: None)
  Receive Date: 20120424
  Receipt Date: 20120418
  Transmission Date: 20120825
  Serious: Yes (Hospitalization, Disabling, Other)
  Sender: FDA-Public Use
  Company Number: US-TEVA-334177USA

PATIENT
  Sex: Female

DRUGS (2)
  1. CARBAMAZEPINE [Suspect]
  2. CARBAMAZEPINE [Suspect]
     Indication: FACIAL SPASM
     Dosage: 200 MILLIGRAM;
     Dates: start: 20110330, end: 20110416

REACTIONS (23)
  - MOUTH ULCERATION [None]
  - ANXIETY [None]
  - EYE DISORDER [None]
  - BLISTER [None]
  - SWELLING FACE [None]
  - PRURITUS [None]
  - GAIT DISTURBANCE [None]
  - DEPRESSION [None]
  - EYE IRRITATION [None]
  - EYE PAIN [None]
  - VULVOVAGINAL DISCOMFORT [None]
  - VULVAL DISORDER [None]
  - VAGINAL DISORDER [None]
  - ANORECTAL DISORDER [None]
  - SWELLING [None]
  - DRY EYE [None]
  - ONYCHOMADESIS [None]
  - SEXUAL DYSFUNCTION [None]
  - STEVENS-JOHNSON SYNDROME [None]
  - EYE SWELLING [None]
  - SCAR [None]
  - ANAPHYLACTIC REACTION [None]
  - ACTIVITIES OF DAILY LIVING IMPAIRED [None]
